FAERS Safety Report 9086279 (Version 1)
Quarter: 2013Q1

REPORT INFORMATION
  Report Type: Spontaneous
  Country: SA (occurrence: SA)
  Receive Date: 20130218
  Receipt Date: 20130218
  Transmission Date: 20140127
  Serious: Yes (Life-Threatening)
  Sender: FDA-Public Use
  Company Number: SA-AMGEN-SAUSP2013010786

PATIENT
  Age: 16 Year
  Sex: Male
  Weight: 117 kg

DRUGS (6)
  1. NEULASTA [Suspect]
     Indication: PROPHYLAXIS
     Dosage: 0.6 MG, 1 IN 1 TOTAL
     Route: 058
     Dates: start: 20130111
  2. NYSTATIN [Concomitant]
     Dosage: 509000 U, UNK
     Route: 048
  3. FONDAPARINUX SODIUM [Concomitant]
     Indication: DEEP VEIN THROMBOSIS
     Dosage: 7.5 MG, QD
     Route: 058
     Dates: start: 20121230
  4. PRIMPERAN [Concomitant]
     Indication: NAUSEA
     Dosage: 20 MG, PRN 1 IN 8 HOURS
     Route: 042
     Dates: start: 20121225
  5. PRIMPERAN [Concomitant]
     Indication: VOMITING
  6. OMEPRAZOLE [Concomitant]
     Dosage: 20 MG, BID
     Route: 048
     Dates: start: 20121225

REACTIONS (1)
  - Febrile neutropenia [Unknown]
